FAERS Safety Report 6293002-4 (Version None)
Quarter: 2009Q3

REPORT INFORMATION
  Report Type: 
  Country: None (occurrence: None)
  Receive Date: 20090731
  Receipt Date: 20090723
  Transmission Date: 20100115
  Serious: Yes (Disabling)
  Sender: FDA-Public Use
  Company Number: US-MERCK-0612USA04017

PATIENT
  Age: 58 Year
  Sex: Female
  Weight: 71 kg

DRUGS (7)
  1. FOSAMAX [Suspect]
     Indication: OSTEOPENIA
     Route: 048
     Dates: start: 19991104, end: 20020201
  2. FOSAMAX [Suspect]
     Route: 048
     Dates: start: 20020329, end: 20060228
  3. FOSAMAX [Suspect]
     Indication: OSTEOPOROSIS
     Route: 048
     Dates: start: 19991104, end: 20020201
  4. FOSAMAX [Suspect]
     Route: 048
     Dates: start: 20020329, end: 20060228
  5. FOSAMAX PLUS D [Suspect]
     Indication: OSTEOPOROSIS
     Route: 048
     Dates: start: 20060101
  6. ZOCOR [Concomitant]
     Indication: HYPERLIPIDAEMIA
     Route: 048
  7. EVISTA [Concomitant]
     Route: 065

REACTIONS (11)
  - BLOOD CHOLESTEROL INCREASED [None]
  - CLOSTRIDIAL INFECTION [None]
  - FATIGUE [None]
  - GINGIVAL BLEEDING [None]
  - LOOSE TOOTH [None]
  - ORAL INFECTION [None]
  - OSTEONECROSIS [None]
  - PAIN IN JAW [None]
  - RESORPTION BONE INCREASED [None]
  - SWELLING [None]
  - WRIST FRACTURE [None]
